FAERS Safety Report 9527689 (Version 1)
Quarter: 2013Q3

REPORT INFORMATION
  Report Type: Spontaneous
  Country: US (occurrence: None)
  Receive Date: 20130913
  Receipt Date: 20130913
  Transmission Date: 20140515
  Serious: Yes (Other)
  Sender: FDA-Public Use
  Company Number: None

PATIENT
  Age: 72 Year
  Sex: Female
  Weight: 68.04 kg

DRUGS (4)
  1. UNSPECIFIED INGREDIENT [Suspect]
     Indication: MOTION SICKNESS
  2. SYNTHROID [Concomitant]
  3. OMEPRAZOLE [Concomitant]
  4. VAGIFEM [Concomitant]

REACTIONS (4)
  - Depression [None]
  - Anxiety [None]
  - Memory impairment [None]
  - Agoraphobia [None]
